FAERS Safety Report 6461837-0 (Version None)
Quarter: 2009Q4

REPORT INFORMATION
  Report Type: 
  Country: None (occurrence: None)
  Receive Date: 20091130
  Receipt Date: 20091117
  Transmission Date: 20100525
  Serious: Yes (Congenital Anomaly)
  Sender: FDA-Public Use
  Company Number: IN-MERCK-0911USA04217

PATIENT
  Age: 24 Year
  Sex: Female

DRUGS (7)
  1. NOROXIN [Suspect]
     Indication: ABDOMINAL PAIN
     Route: 048
  2. DICYCLOMINE HYDROCHLORIDE [Suspect]
     Indication: ABDOMINAL PAIN
     Route: 065
  3. RANITIDINE [Suspect]
     Indication: ABDOMINAL PAIN
     Route: 065
  4. METRONIDAZOLE [Suspect]
     Indication: ABDOMINAL PAIN
     Route: 065
  5. IRON (UNSPECIFIED) [Suspect]
     Indication: ABDOMINAL PAIN
     Route: 065
  6. ZINC (UNSPECIFIED) [Suspect]
     Indication: ABDOMINAL PAIN
     Route: 065
  7. AMINOCAPROIC ACID [Suspect]
     Indication: ABDOMINAL PAIN
     Route: 065

REACTIONS (2)
  - AMNIOTIC BAND SYNDROME [None]
  - DRUG EXPOSURE DURING PREGNANCY [None]
